FAERS Safety Report 20481893 (Version 2)
Quarter: 2022Q1

REPORT INFORMATION
  Report Type: Report from Study
  Country: FR (occurrence: FR)
  Receive Date: 20220216
  Receipt Date: 20220307
  Transmission Date: 20220423
  Serious: Yes (Hospitalization, Other)
  Sender: FDA-Public Use
  Company Number: FR-NOVARTISPH-NVSC2022FR035188

PATIENT
  Sex: Male
  Weight: 78 kg

DRUGS (2)
  1. DABRAFENIB [Suspect]
     Active Substance: DABRAFENIB
     Indication: Metastatic malignant melanoma
     Dosage: 300 MG
     Route: 048
     Dates: start: 20200314
  2. TRAMETINIB [Suspect]
     Active Substance: TRAMETINIB
     Indication: Metastatic malignant melanoma
     Dosage: 2 MG
     Route: 048
     Dates: start: 20200314

REACTIONS (5)
  - Pneumonitis [Recovered/Resolved]
  - Dyspnoea [Unknown]
  - Oxygen saturation decreased [Unknown]
  - Hyperleukocytosis [Not Recovered/Not Resolved]
  - Pneumonia [Not Recovered/Not Resolved]

NARRATIVE: CASE EVENT DATE: 20210610
